FAERS Safety Report 7827424-4 (Version None)
Quarter: 2011Q4

REPORT INFORMATION
  Report Type: 
  Country: None (occurrence: None)
  Receive Date: 20111018
  Receipt Date: 20111006
  Transmission Date: 20120403
  Serious: Yes (Hospitalization)
  Sender: FDA-Public Use
  Company Number: GB-ACCORD-010914

PATIENT
  Age: 75 Year
  Sex: Male

DRUGS (2)
  1. SIMVASTATIN [Suspect]
     Indication: HYPERCHOLESTEROLAEMIA
     Dosage: 40.00-MG-1.00 TIMES PER-1.0DAYS /ORAL
     Route: 048
     Dates: end: 20110923
  2. AMLODIPINE [Suspect]
     Indication: PERIPHERAL COLDNESS
     Dosage: 5.00-MG-1.00 TIMES /ORAL PER-1.0DAYS
     Route: 048
     Dates: start: 20110601, end: 20110923

REACTIONS (11)
  - URINE COLOUR ABNORMAL [None]
  - PROTEIN URINE PRESENT [None]
  - PAIN IN EXTREMITY [None]
  - WHITE BLOOD CELLS URINE POSITIVE [None]
  - GAIT DISTURBANCE [None]
  - BLOOD URINE PRESENT [None]
  - MUSCULAR WEAKNESS [None]
  - ALANINE AMINOTRANSFERASE INCREASED [None]
  - URINE ODOUR ABNORMAL [None]
  - MYOPATHY [None]
  - BLOOD CREATINE PHOSPHOKINASE INCREASED [None]
